FAERS Safety Report 18990102 (Version 4)
Quarter: 2021Q4

REPORT INFORMATION
  Report Type: Other
  Country: CN (occurrence: CN)
  Receive Date: 20210310
  Receipt Date: 20211001
  Transmission Date: 20220303
  Serious: Yes (Other)
  Sender: FDA-Public Use
  Company Number: CN-ROCHE-2778684

PATIENT
  Age: 32 Year
  Sex: Female
  Weight: 45 kg

DRUGS (2)
  1. AVASTIN [Suspect]
     Active Substance: BEVACIZUMAB
     Indication: Rectal cancer
     Route: 041
     Dates: start: 20161215
  2. AVASTIN [Suspect]
     Active Substance: BEVACIZUMAB
     Route: 041
     Dates: start: 20170517, end: 20210616

REACTIONS (6)
  - Stoma creation [Unknown]
  - Proteinuria [Unknown]
  - Product storage error [Unknown]
  - Protein urine present [Unknown]
  - Protein urine present [Unknown]
  - Product storage error [Unknown]

NARRATIVE: CASE EVENT DATE: 20210501
